FAERS Safety Report 5871620-2 (Version None)
Quarter: 2008Q3

REPORT INFORMATION
  Report Type: 
  Country: None (occurrence: None)
  Receive Date: 20080904
  Receipt Date: 20080904
  Transmission Date: 20090109
  Serious: Yes (Life-Threatening, Other)
  Sender: FDA-Public Use
  Company Number: None

PATIENT
  Age: 63 Year
  Sex: Male
  Weight: 84.8226 kg

DRUGS (1)
  1. HYDROCORTISONE [Suspect]
     Indication: ADDISON'S DISEASE
     Dosage: 25 MG DAILY
     Dates: start: 20080701, end: 20080730

REACTIONS (12)
  - ASTHENIA [None]
  - CHILLS [None]
  - DECREASED APPETITE [None]
  - FAECES HARD [None]
  - FATIGUE [None]
  - LETHARGY [None]
  - LOSS OF LIBIDO [None]
  - MUSCLE SPASMS [None]
  - NIGHT SWEATS [None]
  - PAIN [None]
  - PYREXIA [None]
  - WEIGHT DECREASED [None]
